FAERS Safety Report 15723568 (Version 2)
Quarter: 2021Q4

REPORT INFORMATION
  Report Type: Report from Study
  Country: FR (occurrence: FR)
  Receive Date: 20181214
  Receipt Date: 20211014
  Transmission Date: 20220304
  Serious: Yes (Death, Other)
  Sender: FDA-Public Use
  Company Number: FR-PFIZER INC-2018466814

PATIENT
  Age: 19 Year
  Sex: Female
  Weight: 48 kg

DRUGS (7)
  1. BESPONSA [Suspect]
     Active Substance: INOTUZUMAB OZOGAMICIN
     Indication: Acute lymphocytic leukaemia recurrent
     Dosage: 1.16 MG, CYCLIC (CYCLE 1, DAY 1)
     Route: 042
     Dates: start: 20180827, end: 20180827
  2. BESPONSA [Suspect]
     Active Substance: INOTUZUMAB OZOGAMICIN
     Dosage: 0.78 MG, CYCLE1 D8; CYCLE2 D1, D8, D15
     Route: 042
     Dates: start: 20180903, end: 20181001
  3. DEFIBROTIDE [Concomitant]
     Active Substance: DEFIBROTIDE (BOVINE)
     Indication: Prophylaxis
     Dosage: CONTINUOS
     Dates: start: 20181019
  4. CYCLOPHOSPHAMIDE [Concomitant]
     Active Substance: CYCLOPHOSPHAMIDE
     Indication: Prophylaxis against graft versus host disease
     Dosage: 50 MG/KG, UNK
     Route: 042
     Dates: start: 20181025, end: 201810
  5. THIOTEPA [Concomitant]
     Active Substance: THIOTEPA
     Indication: Stem cell transplant
     Dosage: 5 MG/KG, UNK
     Route: 042
     Dates: start: 20181018, end: 20181019
  6. FLUDARABINE [Concomitant]
     Active Substance: FLUDARABINE PHOSPHATE
     Indication: Stem cell transplant
     Dosage: 40 MG/M2, UNK
     Route: 042
     Dates: start: 20181020, end: 20181023
  7. BUSULFAN [Concomitant]
     Active Substance: BUSULFAN
     Indication: Stem cell transplant
     Dosage: 3.2 MG/KG, UNK
     Route: 042
     Dates: start: 20181020, end: 20181022

REACTIONS (1)
  - Venoocclusive liver disease [Fatal]

NARRATIVE: CASE EVENT DATE: 20181102
